FAERS Safety Report 14488491 (Version 3)
Quarter: 2018Q1

REPORT INFORMATION
  Report Type: Spontaneous
  Country: KR (occurrence: KR)
  Receive Date: 20180205
  Receipt Date: 20180219
  Transmission Date: 20180509
  Serious: Yes (Other)
  Sender: FDA-Public Use
  Company Number: KR-PFIZER INC-2018046153

PATIENT
  Age: 54 Year
  Sex: Male

DRUGS (9)
  1. OXALIPLATIN. [Suspect]
     Active Substance: OXALIPLATIN
     Dosage: UNK, CYCLIC (5TH CYCLES)
  2. IRINOTECAN [Concomitant]
     Active Substance: IRINOTECAN
     Indication: COLON CANCER
     Dosage: UNK, CYCLIC (12 CYCLES)
  3. OXALIPLATIN. [Suspect]
     Active Substance: OXALIPLATIN
     Indication: COLON CANCER
     Dosage: UNK, CYCLIC (12 CYCLES)
  4. FOLINIC ACID [Concomitant]
     Active Substance: LEUCOVORIN
     Indication: COLON CANCER
     Dosage: UNK, CYCLIC (12 CYCLES)
  5. 5-FLUOROURACIL /00098801/ [Concomitant]
     Active Substance: FLUOROURACIL
     Dosage: UNK, CYCLIC (12 CYCLES)
  6. OXALIPLATIN. [Suspect]
     Active Substance: OXALIPLATIN
     Dosage: UNK, CYCLIC (12 CYCLES)
  7. 5-FLUOROURACIL /00098801/ [Concomitant]
     Active Substance: FLUOROURACIL
     Indication: COLON CANCER
     Dosage: UNK, CYCLIC (12 CYCLES)
  8. BEVACIZUMAB. [Concomitant]
     Active Substance: BEVACIZUMAB
     Indication: COLON CANCER
     Dosage: UNK, CYCLIC (12 CYCLES)
  9. FOLINIC ACID [Concomitant]
     Active Substance: LEUCOVORIN
     Dosage: UNK, CYCLIC (12 CYCLES)

REACTIONS (3)
  - Drug hypersensitivity [Unknown]
  - Haemolytic anaemia [Unknown]
  - Tubulointerstitial nephritis [Recovering/Resolving]
